FAERS Safety Report 6200385-X (Version None)
Quarter: 2009Q2

REPORT INFORMATION
  Report Type: 
  Country: None (occurrence: None)
  Receive Date: 20090522
  Receipt Date: 20090515
  Transmission Date: 20091009
  Serious: Yes (Hospitalization)
  Sender: FDA-Public Use
  Company Number: IT-PFIZER INC-2009214194

PATIENT
  Age: 61 Year

DRUGS (1)
  1. CELEBREX [Suspect]
     Indication: CERVICAL ROOT PAIN
     Dosage: 200 MG, 1X/DAY
     Route: 048
     Dates: start: 20090418, end: 20090418

REACTIONS (1)
  - ANAPHYLACTIC SHOCK [None]
